FAERS Safety Report 17858054 (Version 2)
Quarter: 2020Q4

REPORT INFORMATION
  Report Type: Spontaneous
  Country: US (occurrence: US)
  Receive Date: 20200604
  Receipt Date: 20201001
  Transmission Date: 20210113
  Serious: Yes (Hospitalization, Other)
  Sender: FDA-Public Use
  Company Number: US-009507513-2006USA000500

PATIENT
  Age: 36 Year
  Sex: Male

DRUGS (2)
  1. DIFICID [Suspect]
     Active Substance: FIDAXOMICIN
     Dosage: UNK
     Route: 048
     Dates: start: 20200527
  2. DIFICID [Suspect]
     Active Substance: FIDAXOMICIN
     Indication: CLOSTRIDIUM DIFFICILE INFECTION
     Dosage: 1 DOSE
     Route: 048
     Dates: start: 20200520

REACTIONS (3)
  - Pain [Not Recovered/Not Resolved]
  - Large intestinal ulcer haemorrhage [Not Recovered/Not Resolved]
  - Feeling abnormal [Unknown]

NARRATIVE: CASE EVENT DATE: 20200521
